FAERS Safety Report 10253060 (Version 4)
Quarter: 2015Q3

REPORT INFORMATION
  Report Type: Spontaneous
  Country: JP (occurrence: JP)
  Receive Date: 20140623
  Receipt Date: 20150713
  Transmission Date: 20151125
  Serious: Yes (Hospitalization, Other)
  Sender: FDA-Public Use
  Company Number: JP-JNJFOC-20130917323

PATIENT
  Age: 19 Year
  Sex: Male
  Weight: 53 kg

DRUGS (20)
  1. LACTEC [Concomitant]
     Active Substance: CALCIUM CHLORIDE ANHYDROUS\POTASSIUM CHLORIDE\SODIUM CHLORIDE\SODIUM LACTATE
     Route: 051
     Dates: start: 20121106, end: 20121106
  2. LEUKERIN [Concomitant]
     Active Substance: MERCAPTOPURINE
     Route: 048
     Dates: start: 20121119, end: 20121119
  3. REMICADE [Suspect]
     Active Substance: INFLIXIMAB
     Indication: CROHN^S DISEASE
     Route: 042
     Dates: start: 201209, end: 20121031
  4. LACTEC [Concomitant]
     Active Substance: CALCIUM CHLORIDE ANHYDROUS\POTASSIUM CHLORIDE\SODIUM CHLORIDE\SODIUM LACTATE
     Route: 051
     Dates: start: 20121112, end: 20121112
  5. FERROMIA [Concomitant]
     Active Substance: FERROUS CITRATE
     Route: 048
     Dates: start: 20121108, end: 20121114
  6. PURSENNID [Concomitant]
     Active Substance: SENNOSIDES A AND B
     Dosage: ORAL
     Route: 065
     Dates: start: 20121111, end: 20121112
  7. MESALAZINE [Suspect]
     Active Substance: MESALAMINE
     Indication: CROHN^S DISEASE
     Route: 065
  8. PARIET [Concomitant]
     Active Substance: RABEPRAZOLE SODIUM
     Route: 048
     Dates: start: 20121115, end: 20121119
  9. PARIET [Concomitant]
     Active Substance: RABEPRAZOLE SODIUM
     Route: 048
     Dates: start: 20121108, end: 20121114
  10. PENTASA [Concomitant]
     Active Substance: MESALAMINE
     Route: 048
     Dates: start: 20121116, end: 20121119
  11. PENTASA [Concomitant]
     Active Substance: MESALAMINE
     Route: 048
     Dates: start: 20121115, end: 20121115
  12. REMICADE [Suspect]
     Active Substance: INFLIXIMAB
     Indication: CROHN^S DISEASE
     Route: 042
     Dates: start: 201208
  13. FERROMIA [Concomitant]
     Active Substance: FERROUS CITRATE
     Route: 048
     Dates: start: 20121107, end: 20121107
  14. BAKTAR [Concomitant]
     Active Substance: SULFAMETHOXAZOLE\TRIMETHOPRIM
     Route: 048
     Dates: start: 20121119, end: 20121119
  15. PARIET [Concomitant]
     Active Substance: RABEPRAZOLE SODIUM
     Route: 048
     Dates: start: 20121107, end: 20121107
  16. PURSENNID [Concomitant]
     Active Substance: SENNOSIDES A AND B
     Dosage: PARENTRAL
     Route: 065
     Dates: start: 20121112, end: 20121112
  17. PARIET [Concomitant]
     Active Substance: RABEPRAZOLE SODIUM
     Route: 048
     Dates: start: 20121031, end: 20121106
  18. FERROMIA [Concomitant]
     Active Substance: FERROUS CITRATE
     Route: 048
     Dates: start: 20121106, end: 20121106
  19. DORMICUM [Concomitant]
     Active Substance: MIDAZOLAM\MIDAZOLAM HYDROCHLORIDE
     Route: 048
     Dates: start: 20121112, end: 20121112
  20. PENTASA [Concomitant]
     Active Substance: MESALAMINE
     Route: 048
     Dates: start: 20121113, end: 20121114

REACTIONS (2)
  - Rash pustular [Recovered/Resolved]
  - Paradoxical drug reaction [Recovered/Resolved]

NARRATIVE: CASE EVENT DATE: 201210
